FAERS Safety Report 22325032 (Version 1)
Quarter: 2023Q2

REPORT INFORMATION
  Report Type: Spontaneous
  Country: CZ (occurrence: CZ)
  Receive Date: 20230516
  Receipt Date: 20230516
  Transmission Date: 20230722
  Serious: Yes (Death, Hospitalization, Other)
  Sender: FDA-Public Use
  Company Number: CZ-BRISTOL-MYERS SQUIBB COMPANY-2023-065858

PATIENT
  Age: 61 Year
  Sex: Female
  Weight: 48 kg

DRUGS (21)
  1. NIVOLUMAB [Suspect]
     Active Substance: NIVOLUMAB
     Indication: Lung adenocarcinoma
     Dosage: CYCLE 1 IN COMBINATION WITH IPILIMUMAB, CARBOPATIN AND PEMETREXED
     Dates: start: 20220315
  2. NIVOLUMAB [Suspect]
     Active Substance: NIVOLUMAB
     Dosage: CYCLE 2 IN COMBINATION WITH PEGFILGRASTIM, CARBOPLATIN AND PEMETREXED
     Dates: start: 20220405
  3. NIVOLUMAB [Suspect]
     Active Substance: NIVOLUMAB
     Dosage: CYCLE 3 IN COMBINATION WITH IPILIMUMAB
     Dates: start: 20220426
  4. NIVOLUMAB [Suspect]
     Active Substance: NIVOLUMAB
     Dosage: CYCLE 4 MONOTHERAPY
     Dates: start: 20220517
  5. NIVOLUMAB [Suspect]
     Active Substance: NIVOLUMAB
     Dosage: CYCLE 5 IN COMBINATION WITH IPILIMUMAB
     Dates: start: 20220712
  6. NIVOLUMAB [Suspect]
     Active Substance: NIVOLUMAB
     Dosage: CYCLE 6 MONOTHERAPY
     Dates: start: 20220802
  7. NIVOLUMAB [Suspect]
     Active Substance: NIVOLUMAB
     Dosage: CYCLE 7 IN COMBINATION WITH IPILIMUMAB
     Dates: start: 20220823
  8. NIVOLUMAB [Suspect]
     Active Substance: NIVOLUMAB
     Dosage: CYCLE 8 MONOTHERAPY
     Dates: start: 20220913
  9. NIVOLUMAB [Suspect]
     Active Substance: NIVOLUMAB
     Dosage: CYCLE 9 IN COMBINATION WITH IPILIMUMAB
     Dates: start: 20221004
  10. NIVOLUMAB [Suspect]
     Active Substance: NIVOLUMAB
     Dosage: CYCLE 10 MONOTHERAPY
     Dates: start: 20221101
  11. IPILIMUMAB [Suspect]
     Active Substance: IPILIMUMAB
     Indication: Lung adenocarcinoma
     Dosage: CYCLE 1 IN COMBINATION WITH NIVOLUMAB, CARBOPLATIN AND PEMETREXED
     Dates: start: 20210315
  12. IPILIMUMAB [Suspect]
     Active Substance: IPILIMUMAB
     Dosage: CYCLE 3 IN COMBINATION WITH NIVOLUMAB
     Dates: start: 20220426
  13. IPILIMUMAB [Suspect]
     Active Substance: IPILIMUMAB
     Dosage: CYCLE 5 IN COMBINATION WITH NIVOLUMAB
     Dates: start: 20220712
  14. IPILIMUMAB [Suspect]
     Active Substance: IPILIMUMAB
     Dosage: CYCLE 7 IN COMBINATION WITH NIVOLUMAB
     Dates: start: 20220823
  15. IPILIMUMAB [Suspect]
     Active Substance: IPILIMUMAB
     Dosage: CYCLE 9 IN COMBINATION WITH NIVOLUMAB
     Dates: start: 20221004
  16. CARBOPLATIN [Suspect]
     Active Substance: CARBOPLATIN
     Indication: Lung adenocarcinoma
     Dosage: CYCLE 2 IN COMBINATION WITH NIVOLUMAB, PEGFILGRASTIM AND PEMETREXED
     Dates: start: 20220405
  17. CARBOPLATIN [Suspect]
     Active Substance: CARBOPLATIN
     Dosage: CYCLE 1 IN COMBINATION WITH NIVOLUMAB, IPILIMUMAB AND PEMETREXED
     Dates: start: 20220315
  18. NALOXONE HYDROCHLORIDE\OXYCODONE HYDROCHLORIDE [Suspect]
     Active Substance: NALOXONE HYDROCHLORIDE\OXYCODONE HYDROCHLORIDE
     Indication: Arthralgia
     Dates: start: 202211
  19. PEMETREXED [Suspect]
     Active Substance: PEMETREXED
     Indication: Lung adenocarcinoma
     Dosage: CYCLE 2 IN COMBINATION WITH NIVOLUMAB, PEGFILGRASTIM AND CARBOPLATIN
     Dates: start: 20220405
  20. PEMETREXED [Suspect]
     Active Substance: PEMETREXED
     Dosage: CYCLE 1 IN COMBINATION WITH NIVOLUMAB, IPILIMUMAB AND CARBOPLATIN
     Dates: start: 20220315
  21. PEGFILGRASTIM [Concomitant]
     Active Substance: PEGFILGRASTIM
     Indication: Lung adenocarcinoma

REACTIONS (31)
  - Vertigo [Unknown]
  - Nausea [Unknown]
  - Vomiting [Unknown]
  - Asthenia [Unknown]
  - Hypophagia [Unknown]
  - General physical health deterioration [Unknown]
  - Chest pain [Unknown]
  - Anaemia [Unknown]
  - Radiation associated pain [Unknown]
  - Confusional state [Unknown]
  - Communication disorder [Unknown]
  - Klebsiella test positive [Unknown]
  - Delusion [Unknown]
  - Hallucination [Unknown]
  - Diarrhoea [Unknown]
  - Sudden death [Fatal]
  - Neutropenia [Unknown]
  - Fluid intake reduced [Unknown]
  - Lymphangiosis carcinomatosa [Unknown]
  - Blood corticotrophin decreased [Unknown]
  - Malignant neoplasm progression [Unknown]
  - Somnolence [Unknown]
  - Decreased appetite [Unknown]
  - Pneumonia [Unknown]
  - Paraparesis [Unknown]
  - Staring [Unknown]
  - Hydrothorax [Unknown]
  - Arthralgia [Unknown]
  - Pelvic abscess [Unknown]
  - Condition aggravated [Unknown]
  - Pyrexia [Unknown]

NARRATIVE: CASE EVENT DATE: 20220315
